FAERS Safety Report 10756248 (Version 3)
Quarter: 2015Q2

REPORT INFORMATION
  Report Type: Spontaneous
  Country: US (occurrence: US)
  Receive Date: 20150202
  Receipt Date: 20150501
  Transmission Date: 20150821
  Serious: No
  Sender: FDA-Public Use
  Company Number: US-009507513-1501USA012450

PATIENT
  Sex: Female
  Weight: 62.59 kg

DRUGS (1)
  1. DECADRON [Suspect]
     Active Substance: DEXAMETHASONE
     Indication: INTERVERTEBRAL DISC PROTRUSION
     Dosage: 3 MG, QD
     Dates: start: 201411

REACTIONS (1)
  - Drug ineffective [Unknown]
